FAERS Safety Report 19519028 (Version 5)
Quarter: 2021Q4

REPORT INFORMATION
  Report Type: Spontaneous
  Country: JP (occurrence: JP)
  Receive Date: 20210712
  Receipt Date: 20211118
  Transmission Date: 20220303
  Serious: Yes (Death, Hospitalization, Other)
  Sender: FDA-Public Use
  Company Number: JP-MSD-2107JPN000400JAA

PATIENT
  Age: 65 Year
  Sex: Female
  Weight: 49 kg

DRUGS (7)
  1. KEYTRUDA [Suspect]
     Active Substance: PEMBROLIZUMAB
     Indication: Lung adenocarcinoma stage IV
     Dosage: 200 MILLIGRAM/DOSE
     Route: 041
     Dates: start: 20200107, end: 20200714
  2. CARBOPLATIN [Concomitant]
     Active Substance: CARBOPLATIN
     Indication: Lung adenocarcinoma stage IV
     Dosage: 490 MILLIGRAM
     Route: 051
     Dates: start: 20200107, end: 20200310
  3. PEMETREXED DISODIUM [Concomitant]
     Active Substance: PEMETREXED DISODIUM
     Indication: Lung adenocarcinoma stage IV
     Dosage: 720 MILLIGRAM, TIW
     Route: 051
     Dates: start: 20200107, end: 20200714
  4. PANVITAN [ASCORBIC ACID;CALCIUM PANTOTHENATE;CYANOCOBALAMIN;ERGOCALCIF [Concomitant]
     Indication: Vitamin supplementation
     Dosage: 1 GRAM, QD
     Route: 048
     Dates: start: 20200106, end: 20201028
  5. EDOXABAN TOSYLATE [Concomitant]
     Active Substance: EDOXABAN TOSYLATE
     Indication: Deep vein thrombosis
     Dosage: 30 MILLIGRAM, QD
     Route: 048
     Dates: start: 20200106, end: 20210503
  6. ACETAMINOPHEN\TRAMADOL HYDROCHLORIDE [Concomitant]
     Active Substance: ACETAMINOPHEN\TRAMADOL HYDROCHLORIDE
     Indication: Back pain
     Dosage: 1T, QID
     Route: 048
     Dates: start: 20200106, end: 20210323
  7. MAGNESIUM OXIDE [Concomitant]
     Active Substance: MAGNESIUM OXIDE
     Indication: Constipation
     Dosage: 2T, TID
     Route: 048
     Dates: start: 20200106, end: 20210323

REACTIONS (4)
  - Malignant neoplasm progression [Fatal]
  - Immune-mediated cholangitis [Not Recovered/Not Resolved]
  - Osteoporosis [Unknown]
  - Gastritis [Unknown]

NARRATIVE: CASE EVENT DATE: 20200101
